FAERS Safety Report 6225157-1 (Version None)
Quarter: 2009Q2

REPORT INFORMATION
  Report Type: 
  Country: None (occurrence: None)
  Receive Date: 20090612
  Receipt Date: 20090409
  Transmission Date: 20091009
  Serious: Yes (Other)
  Sender: FDA-Public Use
  Company Number: US-ABBOTT-09P-163-0567254-00

PATIENT
  Sex: Female
  Weight: 64.922 kg

DRUGS (3)
  1. HUMIRA [Suspect]
     Indication: CROHN'S DISEASE
     Route: 058
     Dates: start: 20080501, end: 20090306
  2. HUMIRA [Suspect]
     Indication: ANKYLOSING SPONDYLITIS
  3. BIRTH CONTROL [Concomitant]
     Indication: CONTRACEPTION
     Route: 048

REACTIONS (4)
  - ILL-DEFINED DISORDER [None]
  - MULTIPLE SCLEROSIS [None]
  - PARAESTHESIA [None]
  - RHEUMATOID ARTHRITIS [None]
